FAERS Safety Report 23175683 (Version 1)
Quarter: 2023Q4

REPORT INFORMATION
  Report Type: Spontaneous
  Country: US (occurrence: US)
  Receive Date: 20231113
  Receipt Date: 20231113
  Transmission Date: 20240109
  Serious: Yes (Other)
  Sender: FDA-Public Use
  Company Number: US-AstraZeneca-2023A040240

PATIENT
  Age: 76 Year
  Sex: Male
  Weight: 68 kg

DRUGS (5)
  1. BUDESONIDE [Suspect]
     Active Substance: BUDESONIDE
     Indication: Seasonal allergy
     Dosage: ROA: RESPIRATORY (INHALATION), BID?DAILY DOSE: 720 MICROGRAM
     Route: 055
  2. BUDESONIDE [Suspect]
     Active Substance: BUDESONIDE
     Indication: Asthma
     Dosage: ROA: RESPIRATORY (INHALATION), BID?DAILY DOSE: 720 MICROGRAM
     Route: 055
  3. BUDESONIDE [Suspect]
     Active Substance: BUDESONIDE
     Indication: Seasonal allergy
     Dosage: ROA: RESPIRATORY (INHALATION)?DAILY DOSE: 720 MICROGRAM
     Route: 055
  4. BUDESONIDE [Suspect]
     Active Substance: BUDESONIDE
     Indication: Asthma
     Dosage: ROA: RESPIRATORY (INHALATION)?DAILY DOSE: 720 MICROGRAM
     Route: 055
  5. ALBUTEROL [Concomitant]
     Active Substance: ALBUTEROL
     Dosage: AS REQUIRED

REACTIONS (11)
  - Deafness [Unknown]
  - Illness [Unknown]
  - Drug ineffective [Not Recovered/Not Resolved]
  - Incorrect dose administered by device [Unknown]
  - Wrong technique in device usage process [Unknown]
  - Device use issue [Unknown]
  - Product taste abnormal [Unknown]
  - Device malfunction [Unknown]
  - Device defective [Unknown]
  - Intentional device use issue [Unknown]
  - Product use in unapproved indication [Unknown]

NARRATIVE: CASE EVENT DATE: 20220901
